FAERS Safety Report 25982356 (Version 1)
Quarter: 2025Q4

REPORT INFORMATION
  Report Type: Spontaneous
  Country: IN (occurrence: None)
  Receive Date: 20251031
  Receipt Date: 20251031
  Transmission Date: 20260117
  Serious: Yes (Other)
  Sender: INFORLIFE
  Company Number: IN-MLMSERVICE-20251015-PI677012-00290-1

PATIENT
  Age: 1 Year
  Sex: Male
  Weight: 10 kg

DRUGS (6)
  1. ROPIVACAINE [Suspect]
     Active Substance: ROPIVACAINE
     Indication: Nerve block
     Dosage: 0.75?1 ML FOR EACH CRANIAL NERVE ; IN TOTAL
  2. SEVOFLURANE [Concomitant]
     Active Substance: SEVOFLURANE
     Indication: General anaesthesia
     Dosage: SEVOFLURANE (0.8?1.0 MAC) IN A MIXTURE OF O2 AND AIR (1:2) AT A FLOW RATE OF 2 L/ MIN ()
  3. OXYGEN [Concomitant]
     Active Substance: OXYGEN
     Indication: General anaesthesia
     Dosage: SEVOFLURANE (0.8?1.0 MAC) IN A MIXTURE OF O2 AND AIR (1:2) AT A FLOW RATE OF 2 L/MIN ()
  4. FENTANYL [Concomitant]
     Active Substance: FENTANYL
     Indication: General anaesthesia
  5. NEOSTIGMINE [Concomitant]
     Active Substance: NEOSTIGMINE
     Indication: Anaesthesia reversal
     Dosage: IN TOTAL
  6. GLYCOPYRROLATE [Concomitant]
     Active Substance: GLYCOPYRROLATE
     Indication: Anaesthesia reversal
     Dosage: IN TOTAL

REACTIONS (1)
  - Facial paralysis [Recovering/Resolving]
